FAERS Safety Report 21616027 (Version 2)
Quarter: 2023Q1

REPORT INFORMATION
  Report Type: Report from Study
  Country: US (occurrence: US)
  Receive Date: 20221118
  Receipt Date: 20230131
  Transmission Date: 20230418
  Serious: No
  Sender: FDA-Public Use
  Company Number: US-ABBVIE-4187412

PATIENT
  Sex: Male

DRUGS (1)
  1. HUMIRA [Suspect]
     Active Substance: ADALIMUMAB
     Indication: Psoriasis
     Dosage: ONSET DATE FOR EVENT OF THERAPEUTIC DRUG EFFECT DECREASED WAS 2022.
     Route: 058
     Dates: start: 202204, end: 202210

REACTIONS (1)
  - Therapeutic product effect decreased [Unknown]
